FAERS Safety Report 19069143 (Version 1)
Quarter: 2021Q1

REPORT INFORMATION
  Report Type: Spontaneous
  Country: US (occurrence: US)
  Receive Date: 20210329
  Receipt Date: 20210329
  Transmission Date: 20210420
  Serious: Yes (Hospitalization)
  Sender: FDA-Public Use
  Company Number: None

PATIENT
  Sex: Female

DRUGS (15)
  1. RISAQUAD [Concomitant]
     Active Substance: DIETARY SUPPLEMENT\PROBIOTICS
  2. ONDANSETRON [Concomitant]
     Active Substance: ONDANSETRON
  3. DEFEROXAMINE [Suspect]
     Active Substance: DEFEROXAMINE MESYLATE
     Indication: PRODUCT USED FOR UNKNOWN INDICATION
     Route: 030
     Dates: start: 20190621
  4. PANTOPRAZOLE [Concomitant]
     Active Substance: PANTOPRAZOLE
  5. AMLODIPINE [Concomitant]
     Active Substance: AMLODIPINE BESYLATE
  6. PROMETHAZINE [Concomitant]
     Active Substance: PROMETHAZINE HYDROCHLORIDE
  7. HYDROMET [Concomitant]
     Active Substance: HOMATROPINE METHYLBROMIDE\HYDROCODONE BITARTRATE
  8. HYDROXY UREA [Concomitant]
  9. AMOXICILLIN. [Concomitant]
     Active Substance: AMOXICILLIN
  10. FOLIC ACID. [Concomitant]
     Active Substance: FOLIC ACID
  11. POT CHLORIDE [Concomitant]
     Active Substance: POTASSIUM CHLORIDE
  12. OXYCODONE AND ACETAMINOPHEN [Concomitant]
     Active Substance: ACETAMINOPHEN\OXYCODONE HYDROCHLORIDE
  13. BENZONATATE. [Concomitant]
     Active Substance: BENZONATATE
  14. TRAMADOL. [Concomitant]
     Active Substance: TRAMADOL
  15. CLARITHROMYC [Concomitant]

REACTIONS (1)
  - Hospitalisation [None]
